FAERS Safety Report 21508872 (Version 3)
Quarter: 2022Q4

REPORT INFORMATION
  Report Type: Spontaneous
  Country: JP (occurrence: JP)
  Receive Date: 20221026
  Receipt Date: 20221212
  Transmission Date: 20230112
  Serious: Yes (Death, Other)
  Sender: FDA-Public Use
  Company Number: JP-JAZZ-2022-JP-033588

PATIENT
  Age: 4 Year
  Sex: Male
  Weight: 13.9 kg

DRUGS (1)
  1. DEFITELIO [Suspect]
     Active Substance: DEFIBROTIDE SODIUM
     Indication: Venoocclusive liver disease
     Dosage: 25 MILLIGRAM/KILOGRAM
     Route: 042
     Dates: start: 20220222, end: 20220412

REACTIONS (1)
  - Graft versus host disease in lung [Fatal]

NARRATIVE: CASE EVENT DATE: 20220101
